FAERS Safety Report 9537572 (Version 1)
Quarter: 2013Q3

REPORT INFORMATION
  Report Type: Spontaneous
  Country: GB (occurrence: GB)
  Receive Date: 20130919
  Receipt Date: 20130919
  Transmission Date: 20140515
  Serious: Yes (Other)
  Sender: FDA-Public Use
  Company Number: GB-TEVA-431576ISR

PATIENT
  Age: 28 Year
  Sex: Female
  Weight: 76.2 kg

DRUGS (1)
  1. VENLAFAXINE [Suspect]
     Indication: DEPRESSION
     Route: 048
     Dates: start: 20130621, end: 20130819

REACTIONS (10)
  - Lethargy [Not Recovered/Not Resolved]
  - Sweat gland disorder [Not Recovered/Not Resolved]
  - Nightmare [Not Recovered/Not Resolved]
  - Insomnia [Not Recovered/Not Resolved]
  - Dizziness [Not Recovered/Not Resolved]
  - Tremor [Recovered/Resolved with Sequelae]
  - Anxiety [Not Recovered/Not Resolved]
  - Somnolence [Not Recovered/Not Resolved]
  - Feeling abnormal [Unknown]
  - Withdrawal syndrome [Unknown]
